FAERS Safety Report 16904510 (Version 1)
Quarter: 2019Q4

REPORT INFORMATION
  Report Type: Spontaneous
  Country: US (occurrence: US)
  Receive Date: 20191010
  Receipt Date: 20191010
  Transmission Date: 20200122
  Serious: No
  Sender: FDA-Public Use
  Company Number: US-CHILTERN-US-2019-000728

PATIENT
  Age: 59 Year
  Sex: Female

DRUGS (2)
  1. DORZOLAMIDE [Concomitant]
     Active Substance: DORZOLAMIDE
     Indication: OCULAR HYPERTENSION
     Dosage: (2 X A DAY RIGHT EYE, 3 X A DAY LEFT EYE)
     Route: 047
  2. ROCKLATAN [Suspect]
     Active Substance: LATANOPROST\NETARSUDIL MESYLATE
     Indication: OCULAR HYPERTENSION
     Dosage: 2 GTT, QD
     Route: 047
     Dates: start: 201905

REACTIONS (2)
  - Chalazion [Unknown]
  - Eye pruritus [Unknown]

NARRATIVE: CASE EVENT DATE: 201908
